FAERS Safety Report 23133379 (Version 1)
Quarter: 2023Q4

REPORT INFORMATION
  Report Type: Spontaneous
  Country: US (occurrence: US)
  Receive Date: 20231101
  Receipt Date: 20231101
  Transmission Date: 20240110
  Serious: Yes (Other)
  Sender: FDA-Public Use
  Company Number: US-AUROBINDO-AUR-APL-2023-065852

PATIENT
  Age: 65 Year
  Sex: Male

DRUGS (3)
  1. ARGATROBAN [Suspect]
     Active Substance: ARGATROBAN
     Indication: Heparin-induced thrombocytopenia
     Dosage: UNK
     Route: 065
  2. CEFTRIAXONE [Concomitant]
     Active Substance: CEFTRIAXONE\CEFTRIAXONE SODIUM
     Indication: Colitis
     Dosage: UNK
     Route: 065
  3. HEPARIN [Concomitant]
     Active Substance: HEPARIN SODIUM
     Indication: Aneurysm repair
     Dosage: 1000 INTERNATIONAL UNIT, 3 TIMES A DAY (
     Route: 065

REACTIONS (1)
  - Drug ineffective [Unknown]
